FAERS Safety Report 7245827 (Version 22)
Quarter: 2013Q4

REPORT INFORMATION
  Report Type: Spontaneous
  Country: US (occurrence: US)
  Receive Date: 20100114
  Receipt Date: 20131101
  Transmission Date: 20140711
  Serious: Yes (Death, Hospitalization, Other)
  Sender: FDA-Public Use
  Company Number: PHEH2010US00463

PATIENT
  Age: 80 Year
  Sex: Male
  Weight: 80.27 kg

DRUGS (33)
  1. ZOMETA [Suspect]
     Dosage: 3 MG, QW4
     Route: 042
     Dates: start: 20040106, end: 20070319
  2. ZOMETA [Suspect]
     Dosage: 3 MG
  3. ZOMETA [Suspect]
     Dates: end: 2008
  4. ACTOS                                   /CAN/ [Concomitant]
  5. ALLOPURINOL [Concomitant]
  6. LIPITOR                                 /NET/ [Concomitant]
  7. ASPIRIN ^BAYER^ [Concomitant]
  8. SUTENT [Concomitant]
  9. BENEFIBER [Concomitant]
  10. CENTRUM SILVER [Concomitant]
  11. NEXAVAR [Concomitant]
  12. ZESTRIL [Concomitant]
  13. SPORANOX [Concomitant]
  14. PROCARDIA [Concomitant]
  15. MODURETIC [Concomitant]
  16. LEVAQUIN [Concomitant]
  17. IBUPROFEN [Concomitant]
  18. LAMISIL [Concomitant]
  19. CELEBREX [Concomitant]
  20. LIPITOR [Concomitant]
  21. LISINOPRIL [Concomitant]
  22. FENTANYL [Concomitant]
  23. CATAPRES [Concomitant]
  24. SYNTHROID [Concomitant]
  25. DURAGESIC [Concomitant]
  26. PROTONIX [Concomitant]
  27. MEGACE [Concomitant]
  28. EXELON [Concomitant]
  29. VITAMIN D [Concomitant]
  30. KYOLIC [Concomitant]
  31. ASPIRIN [Concomitant]
  32. LEVOTHYROXINE [Concomitant]
  33. WARFARIN [Concomitant]

REACTIONS (94)
  - Death [Fatal]
  - Haematochezia [Unknown]
  - Haemorrhage [Unknown]
  - Cellulitis [Unknown]
  - Osteonecrosis of jaw [Unknown]
  - Injury [Unknown]
  - Pain [Unknown]
  - Anxiety [Unknown]
  - Quality of life decreased [Unknown]
  - Physical disability [Unknown]
  - Exposed bone in jaw [Unknown]
  - Diverticulum [Unknown]
  - Arteriosclerosis [Unknown]
  - Lymphadenopathy [Unknown]
  - Soft tissue mass [Unknown]
  - Prostate cancer [Unknown]
  - Ocular icterus [Unknown]
  - Pathological fracture [Unknown]
  - Tooth loss [Unknown]
  - Haematemesis [Unknown]
  - Gastrointestinal haemorrhage [Unknown]
  - Pneumonia [Unknown]
  - Renal failure chronic [Unknown]
  - Proteinuria [Unknown]
  - Respiratory failure [Unknown]
  - Cholelithiasis [Unknown]
  - Osteoarthritis [Unknown]
  - Bone lesion [Unknown]
  - Rash [Unknown]
  - Haematuria [Unknown]
  - Skin cancer [Unknown]
  - Aphasia [Unknown]
  - Femur fracture [Unknown]
  - Coronary artery disease [Unknown]
  - Gynaecomastia [Unknown]
  - Cerebral atrophy [Unknown]
  - Metastases to the mediastinum [Unknown]
  - Osteosclerosis [Unknown]
  - White matter lesion [Unknown]
  - Pelvic pain [Unknown]
  - Joint swelling [Unknown]
  - Joint stiffness [Unknown]
  - Abdominal pain [Unknown]
  - Skin lesion [Unknown]
  - Hyponatraemia [Unknown]
  - Hypothyroidism [Unknown]
  - Anaemia [Unknown]
  - Amnesia [Unknown]
  - Balance disorder [Unknown]
  - Dysarthria [Unknown]
  - Hypometabolism [Unknown]
  - Hypermetabolism [Unknown]
  - Granuloma [Unknown]
  - Nephrolithiasis [Unknown]
  - Renal cyst [Unknown]
  - Dizziness [Unknown]
  - Pulmonary oedema [Unknown]
  - Cough [Unknown]
  - Dyspnoea [Unknown]
  - Atelectasis [Unknown]
  - Pleural effusion [Unknown]
  - Chest pain [Unknown]
  - Hypokalaemia [Unknown]
  - Hypophosphataemia [Unknown]
  - Gout [Unknown]
  - Hepatic calcification [Unknown]
  - Actinic cheilitis [Unknown]
  - Skin papilloma [Unknown]
  - Anal fissure [Unknown]
  - Hyperkeratosis [Unknown]
  - Inguinal hernia [Unknown]
  - Hydrocele [Unknown]
  - Pneumothorax [Unknown]
  - Hypoaesthesia [Unknown]
  - Pain in jaw [Unknown]
  - Bone swelling [Unknown]
  - Azotaemia [Unknown]
  - Metastases to soft tissue [Unknown]
  - Bone fragmentation [Unknown]
  - Primary sequestrum [Unknown]
  - Vertebral osteophyte [Unknown]
  - Epistaxis [Unknown]
  - Impaired healing [Unknown]
  - Diabetic nephropathy [Unknown]
  - Memory impairment [Unknown]
  - Metastases to central nervous system [Unknown]
  - Hepatic lesion [Unknown]
  - Malignant neoplasm progression [Unknown]
  - Metastases to bone [Unknown]
  - Gastrooesophageal reflux disease [Unknown]
  - Palmar-plantar erythrodysaesthesia syndrome [Unknown]
  - Pulmonary mass [Unknown]
  - Actinic keratosis [Unknown]
  - Melanocytic hyperplasia [Unknown]
